FAERS Safety Report 23303756 (Version 1)
Quarter: 2023Q4

REPORT INFORMATION
  Report Type: Spontaneous
  Country: US (occurrence: US)
  Receive Date: 20231215
  Receipt Date: 20231215
  Transmission Date: 20240110
  Serious: No
  Sender: FDA-Public Use
  Company Number: US-GALDERMA-US2023016614

PATIENT

DRUGS (10)
  1. PROACTIV MD ADAPALENE ACNE TREATMENT [Suspect]
     Active Substance: ADAPALENE
     Indication: Acne
     Dosage: 1 DOSAGE FORM, AS DIRECTED
     Route: 061
  2. PROACTIV MD ADAPALENE ACNE TREATMENT [Suspect]
     Active Substance: ADAPALENE
     Indication: Scar
  3. Proactiv MD Ultra Gentle Cleanser [Concomitant]
     Indication: Acne
     Dosage: 1 DOSAGE FORM, AS DIRECTED
     Route: 061
  4. Proactiv MD Ultra Gentle Cleanser [Concomitant]
     Indication: Scar
  5. Proactiv MD Ultra Hydrating Moisturizer [Concomitant]
     Indication: Acne
     Dosage: 1 DOSAGE FORM, AS DIRECTED
     Route: 061
  6. Proactiv MD Ultra Hydrating Moisturizer [Concomitant]
     Indication: Scar
  7. COSMETICS [Concomitant]
     Active Substance: COSMETICS
     Indication: Acne
     Dosage: 1 DOSAGE FORM, AS DIRECTED
     Route: 061
  8. COSMETICS [Concomitant]
     Active Substance: COSMETICS
     Indication: Scar
  9. COSMETICS [Concomitant]
     Active Substance: COSMETICS
     Indication: Acne
     Dosage: 1 DOSAGE FORM, AS DIRECTED
     Route: 061
  10. COSMETICS [Concomitant]
     Active Substance: COSMETICS
     Indication: Scar

REACTIONS (2)
  - Acne [Recovered/Resolved]
  - Drug ineffective [Unknown]
